FAERS Safety Report 4814906-2 (Version None)
Quarter: 2005Q4

REPORT INFORMATION
  Report Type: 
  Country: None (occurrence: None)
  Receive Date: 20051028
  Receipt Date: 20051020
  Transmission Date: 20060501
  Serious: Yes (Other)
  Sender: FDA-Public Use
  Company Number: US-ROCHE-422182

PATIENT
  Age: 45 Year
  Sex: Female

DRUGS (2)
  1. PEGASYS [Suspect]
     Indication: HEPATITIS C
     Dosage: DOSAGE REGIMEN REPORTED AS 1 SHOT/WEEK
     Route: 058
     Dates: start: 20050815
  2. COPEGUS [Suspect]
     Indication: HEPATITIS C
     Dosage: DOSAGE REGIMEN REPORTED AS 4 PILLS DAILY
     Route: 048
     Dates: start: 20050815

REACTIONS (2)
  - ASTHMA [None]
  - CONDITION AGGRAVATED [None]
